FAERS Safety Report 11747090 (Version 1)
Quarter: 2015Q4

REPORT INFORMATION
  Report Type: Spontaneous
  Country: US (occurrence: NL)
  Receive Date: 20151117
  Receipt Date: 20151117
  Transmission Date: 20160304
  Serious: Yes (Hospitalization)
  Sender: FDA-Public Use
  Company Number: NL-AKRON, INC.-1044289

PATIENT
  Age: 82 Year
  Sex: Female
  Weight: 67 kg

DRUGS (2)
  1. ZIOPTAN [Suspect]
     Active Substance: TAFLUPROST
     Indication: INTRAOCULAR PRESSURE INCREASED
     Route: 047
  2. AZARON (TRIPELENNAMINE HYDROCHLORIDE) [Concomitant]

REACTIONS (5)
  - Dyspnoea [Unknown]
  - Pruritus [Unknown]
  - Rash generalised [Unknown]
  - Arrhythmia [None]
  - Cardiac disorder [Recovering/Resolving]
